FAERS Safety Report 6428081-4 (Version None)
Quarter: 2009Q4

REPORT INFORMATION
  Report Type: 
  Country: None (occurrence: None)
  Receive Date: 20091105
  Receipt Date: 20091023
  Transmission Date: 20100525
  Serious: Yes (Death, Hospitalization)
  Sender: FDA-Public Use
  Company Number: DE-ROCHE-665835

PATIENT
  Age: 81 Year
  Sex: Female
  Weight: 60 kg

DRUGS (4)
  1. CAPECITABINE [Suspect]
     Route: 065
     Dates: start: 20080401
  2. L-THYROXIN [Concomitant]
     Indication: HYPOTHYROIDISM
     Dosage: STRENGHT REPORTED AS 100, NO UNITS REPORTED
  3. BIPHOSPHONATE [Concomitant]
     Indication: OSTEOPOROSIS
  4. OXYBUTYNIN [Concomitant]

REACTIONS (5)
  - DEHYDRATION [None]
  - DIARRHOEA [None]
  - FUNGAL INFECTION [None]
  - GENERAL PHYSICAL HEALTH DETERIORATION [None]
  - STOMATITIS [None]
